FAERS Safety Report 4370064-2 (Version None)
Quarter: 2004Q2

REPORT INFORMATION
  Report Type: 
  Country: None (occurrence: None)
  Receive Date: 20040527
  Receipt Date: 20040514
  Transmission Date: 20050107
  Serious: Yes (Hospitalization)
  Sender: FDA-Public Use
  Company Number: FR-JNJFOC-20040503237

PATIENT
  Age: 49 Year
  Sex: Male

DRUGS (2)
  1. REMICADE [Suspect]
     Indication: ANKYLOSING SPONDYLITIS
     Dosage: 5 MG/KG, INTRAVENOUS
     Route: 042
     Dates: start: 20040126
  2. STAMARIL (YELLOW FEVER VACCINE) [Suspect]
     Indication: IMMUNISATION
     Dates: start: 20040131, end: 20040131

REACTIONS (2)
  - DRUG INTERACTION [None]
  - FAMILY STRESS [None]
